FAERS Safety Report 16919503 (Version 1)
Quarter: 2019Q4

REPORT INFORMATION
  Report Type: Spontaneous
  Country: US (occurrence: US)
  Receive Date: 20191014
  Receipt Date: 20191014
  Transmission Date: 20200122
  Serious: Yes (Hospitalization)
  Sender: FDA-Public Use
  Company Number: None

PATIENT
  Age: 60 Year
  Sex: Male

DRUGS (6)
  1. ALPRAZOLAM TAB 0.25 MG [Concomitant]
  2. ROSUVASTATIN TAB 5 MG [Concomitant]
  3. LISINOPRIL TAB 5 MG [Concomitant]
  4. MELOXICAM TAB 15 MG [Concomitant]
  5. ENBREL [Suspect]
     Active Substance: ETANERCEPT
     Indication: ANKYLOSING SPONDYLITIS
     Dosage: ?          OTHER FREQUENCY:WEEKLY;?
     Route: 058
     Dates: start: 20180628
  6. TRAMADOL HCL POW [Concomitant]

REACTIONS (1)
  - Vascular graft [None]
